FAERS Safety Report 6681217-2 (Version None)
Quarter: 2010Q2

REPORT INFORMATION
  Report Type: 
  Country: None (occurrence: None)
  Receive Date: 20100414
  Receipt Date: 20091222
  Transmission Date: 20101027
  Serious: No
  Sender: FDA-Public Use
  Company Number: US-KINGPHARMUSA00001-K200901597

PATIENT
  Age: 54 Year
  Sex: Male
  Weight: 74.83 kg

DRUGS (1)
  1. SKELAXIN [Suspect]
     Indication: BACK PAIN
     Dosage: 800 MG, SINGLE
     Route: 048
     Dates: start: 20091222, end: 20091222

REACTIONS (2)
  - EXPIRED DRUG ADMINISTERED [None]
  - NO ADVERSE EVENT [None]
